FAERS Safety Report 25557149 (Version 1)
Quarter: 2025Q3

REPORT INFORMATION
  Report Type: Spontaneous
  Country: US (occurrence: US)
  Receive Date: 20250715
  Receipt Date: 20250715
  Transmission Date: 20251020
  Serious: Yes (Other)
  Sender: ABBVIE
  Company Number: US-ABBVIE-6368496

PATIENT
  Age: 56 Year
  Sex: Male

DRUGS (1)
  1. RISANKIZUMAB [Suspect]
     Active Substance: RISANKIZUMAB
     Indication: Colitis ulcerative
     Route: 042

REACTIONS (7)
  - Deafness [Unknown]
  - Product storage error [Unknown]
  - Aphasia [Unknown]
  - Presyncope [Unknown]
  - Anaemia [Unknown]
  - Dehydration [Unknown]
  - Learning disability [Unknown]

NARRATIVE: CASE EVENT DATE: 20250709
